FAERS Safety Report 14610186 (Version 1)
Quarter: 2018Q1

REPORT INFORMATION
  Report Type: Spontaneous
  Country: FI (occurrence: FI)
  Receive Date: 20180307
  Receipt Date: 20180307
  Transmission Date: 20180509
  Serious: Yes (Hospitalization)
  Sender: FDA-Public Use
  Company Number: FI-ELI_LILLY_AND_COMPANY-FI201802012157

PATIENT
  Age: 29 Year
  Sex: Male

DRUGS (4)
  1. DEPRAKINE                          /00228501/ [Concomitant]
     Active Substance: VALPROATE SODIUM
     Indication: BIPOLAR DISORDER
     Dosage: 1 G, DAILY
     Route: 048
     Dates: start: 20180117
  2. ZYPADHERA [Suspect]
     Active Substance: OLANZAPINE PAMOATE
     Indication: BIPOLAR DISORDER
     Dosage: 600 MG, MONTHLY (1/M)
     Route: 030
     Dates: start: 20180130
  3. PROPRAL [Concomitant]
     Indication: ANXIETY
     Dosage: UNK, OTHER
     Route: 048
     Dates: start: 20160607
  4. DIAPAM                             /00017001/ [Concomitant]
     Indication: ANXIETY
     Dosage: 10 MG, DAILY
     Route: 048
     Dates: start: 20180105

REACTIONS (13)
  - Miosis [Recovered/Resolved]
  - Post-injection delirium sedation syndrome [Recovered/Resolved]
  - Overdose [Unknown]
  - Dysarthria [Recovered/Resolved]
  - Fatigue [Recovered/Resolved]
  - Blood pressure increased [Recovered/Resolved]
  - Ocular hyperaemia [Recovered/Resolved]
  - Amphetamines positive [Recovered/Resolved]
  - Heart rate increased [Recovered/Resolved]
  - Vision blurred [Recovered/Resolved]
  - Depressed level of consciousness [Recovered/Resolved]
  - Somnolence [Recovered/Resolved]
  - Sedation [Recovered/Resolved]

NARRATIVE: CASE EVENT DATE: 20180131
